FAERS Safety Report 17180978 (Version 1)
Quarter: 2019Q4

REPORT INFORMATION
  Report Type: Report from Study
  Country: NL (occurrence: NL)
  Receive Date: 20191220
  Receipt Date: 20191220
  Transmission Date: 20200122
  Serious: Yes (Hospitalization)
  Sender: FDA-Public Use
  Company Number: NL-ROCHE-2497927

PATIENT
  Age: 52 Year
  Sex: Female
  Weight: 80 kg

DRUGS (7)
  1. OBINUTUZUMAB. [Suspect]
     Active Substance: OBINUTUZUMAB
     Indication: CHRONIC LYMPHOCYTIC LEUKAEMIA
     Dosage: DOSE: ON CYCLE 1: 100 MG AT DAY 1; 900 MG, DAY 2; 1000 MG ON DAY 8 AND 15 ONCE IN 28 DAYS?ON 05/JUN/
     Route: 042
     Dates: start: 20190604
  2. IBRUTINIB [Suspect]
     Active Substance: IBRUTINIB
     Indication: CHRONIC LYMPHOCYTIC LEUKAEMIA
     Dosage: DOSE: CYCLES 1-12: 420 MG, DAY 1-28, ONCE IN 28 DAYS?ON 05/JUN/2019, MOST RECENT DOSE (420 MG) OF IB
     Route: 048
     Dates: start: 20190604
  3. METOPROLOL. [Concomitant]
     Active Substance: METOPROLOL
     Route: 048
     Dates: start: 20190109
  4. TENOFOVIR [Concomitant]
     Active Substance: TENOFOVIR
     Route: 048
     Dates: start: 20190213
  5. ALLOPURINOL. [Concomitant]
     Active Substance: ALLOPURINOL
     Route: 048
     Dates: start: 20190604
  6. CLOTRIMAZOLE. [Concomitant]
     Active Substance: CLOTRIMAZOLE
     Route: 048
     Dates: start: 20190604
  7. LERDIP [Concomitant]
     Route: 048
     Dates: start: 20190223

REACTIONS (2)
  - Metabolic disorder [Recovered/Resolved]
  - Malnutrition [Recovered/Resolved]

NARRATIVE: CASE EVENT DATE: 20190605
